FAERS Safety Report 6480332-6 (Version None)
Quarter: 2009Q4

REPORT INFORMATION
  Report Type: 
  Country: None (occurrence: None)
  Receive Date: 20091202
  Receipt Date: 20091116
  Transmission Date: 20100525
  Serious: Yes (Death)
  Sender: FDA-Public Use
  Company Number: DSA_41832_2009

PATIENT
  Sex: Female

DRUGS (1)
  1. XENAZINE [Suspect]
     Indication: HUNTINGTON'S CHOREA
     Dosage: TWO 12.5 MG TABLETS BID ORAL
     Route: 048
     Dates: start: 20090313

REACTIONS (3)
  - ASPIRATION [None]
  - COMA [None]
  - DYSPHAGIA [None]
